FAERS Safety Report 17208007 (Version 1)
Quarter: 2019Q4

REPORT INFORMATION
  Report Type: Spontaneous
  Country: US (occurrence: US)
  Receive Date: 20191227
  Receipt Date: 20191227
  Transmission Date: 20200122
  Serious: No
  Sender: FDA-Public Use
  Company Number: US-UCBSA-2016018506

PATIENT
  Age: 74 Year
  Sex: Male

DRUGS (5)
  1. LACOSAMIDE. [Suspect]
     Active Substance: LACOSAMIDE
     Indication: OFF LABEL USE
  2. DEPAKOTE [Concomitant]
     Active Substance: DIVALPROEX SODIUM
     Indication: STATUS EPILEPTICUS
     Dosage: UNKNOWN DOSE
  3. KEPPRA [Suspect]
     Active Substance: LEVETIRACETAM
     Indication: STATUS EPILEPTICUS
     Dosage: UNKNOWN DOSE
  4. LACOSAMIDE. [Suspect]
     Active Substance: LACOSAMIDE
     Indication: STATUS EPILEPTICUS
     Dosage: UNKNOWN DOSE
  5. TOPIRAMATE. [Concomitant]
     Active Substance: TOPIRAMATE
     Indication: STATUS EPILEPTICUS
     Dosage: UNKNOWN DOSE

REACTIONS (1)
  - No adverse event [Unknown]
